FAERS Safety Report 17968723 (Version 1)
Quarter: 2020Q3

REPORT INFORMATION
  Report Type: Spontaneous
  Country: HU (occurrence: HU)
  Receive Date: 20200701
  Receipt Date: 20200701
  Transmission Date: 20201103
  Serious: Yes (Other)
  Sender: FDA-Public Use
  Company Number: NVSC2020HU180918

PATIENT
  Age: 72 Year
  Sex: Male
  Weight: 67 kg

DRUGS (1)
  1. PAZOPANIB [Suspect]
     Active Substance: PAZOPANIB
     Indication: PRODUCT USED FOR UNKNOWN INDICATION
     Dosage: 400 MG, BID (2 TABLETS)
     Route: 065
     Dates: start: 20190726, end: 20200110

REACTIONS (9)
  - Catatonia [Unknown]
  - Metastases to peritoneum [Recovering/Resolving]
  - Malignant neoplasm progression [Recovering/Resolving]
  - Metastases to pleura [Recovering/Resolving]
  - Metastases to kidney [Recovering/Resolving]
  - Metastases to lymph nodes [Recovering/Resolving]
  - Pleural effusion [Recovering/Resolving]
  - Pulmonary hilum mass [Recovering/Resolving]
  - Metastases to lung [Recovering/Resolving]

NARRATIVE: CASE EVENT DATE: 20191010
